FAERS Safety Report 17188173 (Version 1)
Quarter: 2019Q4

REPORT INFORMATION
  Report Type: Spontaneous
  Country: SE (occurrence: SE)
  Receive Date: 20191221
  Receipt Date: 20191221
  Transmission Date: 20200122
  Serious: Yes (Hospitalization)
  Sender: FDA-Public Use
  Company Number: SE-TEVA-2019-SE-1154531

PATIENT
  Sex: Female

DRUGS (3)
  1. OXASCAND [Suspect]
     Active Substance: OXAZEPAM
     Dosage: 225MG
     Route: 048
     Dates: start: 20180830, end: 20180830
  2. PROPAVAN [Suspect]
     Active Substance: PROPIOMAZINE
     Dosage: 500 MG
     Route: 048
     Dates: start: 20180830, end: 20180830
  3. IMOVANE [Suspect]
     Active Substance: ZOPICLONE
     Dosage: 10 MG 5 MG
     Route: 048
     Dates: start: 20180830, end: 20180830

REACTIONS (3)
  - Depressed level of consciousness [Unknown]
  - Intentional self-injury [Unknown]
  - Intentional overdose [Unknown]

NARRATIVE: CASE EVENT DATE: 20180830
